FAERS Safety Report 5725248-5 (Version None)
Quarter: 2008Q2

REPORT INFORMATION
  Report Type: 
  Country: None (occurrence: None)
  Receive Date: 20080501
  Receipt Date: 20080424
  Transmission Date: 20081010
  Serious: Yes (Hospitalization)
  Sender: FDA-Public Use
  Company Number: JP-MERCK-0804USA05599

PATIENT
  Age: 88 Year
  Sex: Female

DRUGS (3)
  1. TRUSOPT [Suspect]
     Indication: OPEN ANGLE GLAUCOMA
     Route: 047
     Dates: start: 20080303, end: 20080305
  2. XALATAN [Concomitant]
     Indication: OPEN ANGLE GLAUCOMA
     Route: 047
  3. HYPADIL [Concomitant]
     Indication: OPEN ANGLE GLAUCOMA
     Route: 047
     Dates: start: 20070420

REACTIONS (1)
  - CHOROIDAL DETACHMENT [None]
